FAERS Safety Report 8772500 (Version 1)
Quarter: 2012Q4

REPORT INFORMATION
  Report Type: 
  Country: FR (occurrence: FR)
  Receive Date: 20120904
  Receipt Date: 20120904
  Transmission Date: 20130627
  Serious: Yes (Hospitalization)
  Sender: FDA-Public Use
  Company Number: FR-PFIZER INC-2012210552

PATIENT
  Age: 23 Year
  Sex: Male

DRUGS (3)
  1. DALACINE [Suspect]
     Dosage: 600 mg, 3x/day
     Route: 042
     Dates: start: 20110824, end: 20110916
  2. CEFOXITIN SODIUM [Suspect]
     Dosage: UNK
     Route: 042
     Dates: start: 20110915, end: 20110916
  3. MEFOXIN [Suspect]
     Dosage: 2 mg, 3x/day
     Route: 042
     Dates: start: 20110824, end: 20110916

REACTIONS (3)
  - Hepatocellular injury [Recovered/Resolved]
  - Urticaria [Recovered/Resolved]
  - Skin test negative [Unknown]
